FAERS Safety Report 9774863 (Version 1)
Quarter: 2013Q4

REPORT INFORMATION
  Report Type: Spontaneous
  Country: US (occurrence: US)
  Receive Date: 20131220
  Receipt Date: 20131220
  Transmission Date: 20140711
  Serious: No
  Sender: FDA-Public Use
  Company Number: US-GLAXOSMITHKLINE-A1002679A

PATIENT
  Age: 80 Year
  Sex: Male

DRUGS (7)
  1. AVODART [Suspect]
     Indication: BENIGN PROSTATIC HYPERPLASIA
     Dosage: .5MG PER DAY
     Route: 048
     Dates: start: 20121119
  2. LIPITOR [Concomitant]
  3. FLUCONAZOLE [Concomitant]
  4. ALPRAZOLAM [Concomitant]
  5. FINASTERIDE [Concomitant]
  6. TRAMADOL [Concomitant]
  7. CISPLATIN [Concomitant]

REACTIONS (1)
  - Cough [Recovered/Resolved]
